FAERS Safety Report 17893028 (Version 2)
Quarter: 2020Q2

REPORT INFORMATION
  Report Type: Spontaneous
  Country: CA (occurrence: CA)
  Receive Date: 20200613
  Receipt Date: 20200622
  Transmission Date: 20200714
  Serious: Yes (Hospitalization)
  Sender: FDA-Public Use
  Company Number: NVSC2020CA164817

PATIENT
  Age: 48 Year
  Sex: Female

DRUGS (2)
  1. LANREOTIDE ACETATE [Suspect]
     Active Substance: LANREOTIDE ACETATE
     Indication: NEUROENDOCRINE TUMOUR
     Dosage: 120 MG, 1 EVERY 28 DAYS
     Route: 058
  2. ZOMETA [Suspect]
     Active Substance: ZOLEDRONIC ACID
     Indication: BONE DEVELOPMENT ABNORMAL
     Dosage: UNK
     Route: 065

REACTIONS (5)
  - Dry throat [Recovered/Resolved]
  - Palpitations [Recovered/Resolved]
  - Burning sensation [Recovered/Resolved]
  - Tongue dry [Recovered/Resolved]
  - Influenza like illness [Recovered/Resolved]
